FAERS Safety Report 21045938 (Version 1)
Quarter: 2022Q3

REPORT INFORMATION
  Report Type: Spontaneous
  Country: PL (occurrence: PL)
  Receive Date: 20220706
  Receipt Date: 20220706
  Transmission Date: 20221027
  Serious: Yes (Other)
  Sender: FDA-Public Use
  Company Number: PL-JNJFOC-20220651740

PATIENT
  Age: 73 Year
  Sex: Male

DRUGS (4)
  1. DEXAMETHASONE [Suspect]
     Active Substance: DEXAMETHASONE
     Indication: Plasma cell myeloma
     Route: 065
     Dates: start: 202105
  2. VELCADE [Suspect]
     Active Substance: BORTEZOMIB
     Indication: Plasma cell myeloma
     Dosage: FROM 3RD CYCLE, DUE TO POLYNEUROPATHY, BORTEZOMIB WAS INTRODUCED IN A DOSE OF 1.3 MG/M2 SC 1X A WEEK
     Route: 058
  3. VELCADE [Suspect]
     Active Substance: BORTEZOMIB
     Route: 065
     Dates: start: 202105
  4. DARZALEX [Suspect]
     Active Substance: DARATUMUMAB
     Indication: Plasma cell myeloma
     Dosage: CURRENTLY, ON A MAINTENANCE SC DOSE OF DARZALEX 1X/28 DAYS
     Route: 058
     Dates: start: 202105

REACTIONS (1)
  - Polyneuropathy [Unknown]
